FAERS Safety Report 12321046 (Version 2)
Quarter: 2016Q2

REPORT INFORMATION
  Report Type: Report from Study
  Country: CA (occurrence: CA)
  Receive Date: 20160502
  Receipt Date: 20160506
  Transmission Date: 20160815
  Serious: Yes (Other)
  Sender: FDA-Public Use
  Company Number: CA-ROCHE-ITM201412IM007928

PATIENT
  Age: 79 Year
  Sex: Male
  Weight: 83.5 kg

DRUGS (8)
  1. OMEPRAZOLE. [Interacting]
     Active Substance: OMEPRAZOLE
     Indication: GASTROOESOPHAGEAL REFLUX DISEASE
     Route: 065
     Dates: start: 2007
  2. DILTIAZEM [Concomitant]
     Active Substance: DILTIAZEM
  3. ESBRIET [Interacting]
     Active Substance: PIRFENIDONE
     Route: 048
  4. CRESTOR [Concomitant]
     Active Substance: ROSUVASTATIN CALCIUM
  5. DILTIAZEM [Concomitant]
     Active Substance: DILTIAZEM
  6. ASA [Concomitant]
     Active Substance: ASPIRIN
     Route: 065
  7. ESBRIET [Suspect]
     Active Substance: PIRFENIDONE
     Indication: IDIOPATHIC PULMONARY FIBROSIS
     Route: 048
     Dates: start: 20140220
  8. ESBRIET [Interacting]
     Active Substance: PIRFENIDONE
     Route: 048
     Dates: end: 201412

REACTIONS (15)
  - Swollen tongue [Recovered/Resolved]
  - Skin exfoliation [Recovering/Resolving]
  - Rash [Unknown]
  - Lip swelling [Recovered/Resolved]
  - Dry skin [Recovering/Resolving]
  - Drug interaction [Unknown]
  - Pruritus [Recovering/Resolving]
  - Fatigue [Unknown]
  - Erythema [Recovering/Resolving]
  - Photosensitivity reaction [Unknown]
  - Drug ineffective [Unknown]
  - Nasopharyngitis [Unknown]
  - Pulmonary function test decreased [Unknown]
  - Dysgeusia [Unknown]
  - Weight decreased [Unknown]

NARRATIVE: CASE EVENT DATE: 201412
